FAERS Safety Report 14416784 (Version 1)
Quarter: 2018Q1

REPORT INFORMATION
  Report Type: Spontaneous
  Country: US (occurrence: US)
  Receive Date: 20180119
  Receipt Date: 20180119
  Transmission Date: 20180509
  Serious: Yes (Hospitalization)
  Sender: FDA-Public Use
  Company Number: None

PATIENT
  Age: 64 Year
  Sex: Female

DRUGS (5)
  1. POTASSIUM CHLORIDE. [Concomitant]
     Active Substance: POTASSIUM CHLORIDE
  2. DIPHENHYDRAMINE. [Concomitant]
     Active Substance: DIPHENHYDRAMINE
  3. IRINOTECAN [Concomitant]
     Active Substance: IRINOTECAN
  4. OXALIPLATIN. [Suspect]
     Active Substance: OXALIPLATIN
     Indication: NEOPLASM MALIGNANT
     Route: 042
     Dates: start: 20170517
  5. ACETAMINOPHEN. [Concomitant]
     Active Substance: ACETAMINOPHEN

REACTIONS (6)
  - Stridor [None]
  - Laryngeal oedema [None]
  - Resuscitation [None]
  - Speech disorder [None]
  - Respiratory distress [None]
  - Swelling [None]

NARRATIVE: CASE EVENT DATE: 20170623
